FAERS Safety Report 6557110-2 (Version None)
Quarter: 2010Q1

REPORT INFORMATION
  Report Type: 
  Country: None (occurrence: None)
  Receive Date: 20100128
  Receipt Date: 20100118
  Transmission Date: 20100710
  Serious: Yes (Hospitalization)
  Sender: FDA-Public Use
  Company Number: DE-AMGEN-US387061

PATIENT
  Age: 57 Year
  Sex: Female

DRUGS (3)
  1. ENBREL [Suspect]
     Indication: RHEUMATOID ARTHRITIS
     Route: 058
     Dates: start: 20050808
  2. GLUCOCORTICOIDS [Concomitant]
     Dosage: UNKNOWN
     Route: 065
  3. METHOTREXATE [Concomitant]
     Dosage: UNKNOWN
     Route: 065

REACTIONS (3)
  - OSTEOARTHRITIS [None]
  - SYNOVIAL CYST [None]
  - SYNOVIAL RUPTURE [None]
